FAERS Safety Report 20329107 (Version 1)
Quarter: 2022Q1

REPORT INFORMATION
  Report Type: Spontaneous
  Country: CO (occurrence: CO)
  Receive Date: 20220112
  Receipt Date: 20220112
  Transmission Date: 20220423
  Serious: Yes (Death, Other)
  Sender: FDA-Public Use
  Company Number: CO-AMGEN-COLSP2022003321

PATIENT

DRUGS (4)
  1. FILGRASTIM [Suspect]
     Active Substance: FILGRASTIM
     Indication: Prophylaxis
     Dosage: UNK, DAILY ON DAY 5
     Route: 065
  2. CARBOPLATIN [Suspect]
     Active Substance: CARBOPLATIN
     Indication: Lymphoma
     Dosage: 900 MILLIGRAM/SQ. METER, (450 PLUS 450 MG/M2 ON DAY4, DAY5)
     Route: 065
  3. CYCLOPHOSPHAMIDE [Suspect]
     Active Substance: CYCLOPHOSPHAMIDE
     Indication: Lymphoma
     Dosage: 6000 MILLIGRAM/SQ. METER, (2000 PLUS 2000 PLUS 2000 ON DAY 1, 2, 3)
     Route: 065
  4. ETOPOSIDE [Suspect]
     Active Substance: ETOPOSIDE
     Indication: Lymphoma
     Dosage: 900 MILLIGRAM/SQ. METER, (300 PLUS 300 PLUS 300, ON DAY 2, 3, 4)
     Route: 065

REACTIONS (7)
  - Death [Fatal]
  - Mucosal inflammation [Unknown]
  - Bacteraemia [Unknown]
  - Pneumonia [Unknown]
  - Nephropathy toxic [Unknown]
  - Condition aggravated [Unknown]
  - Infection [Unknown]
